FAERS Safety Report 13913697 (Version 1)
Quarter: 2017Q3

REPORT INFORMATION
  Report Type: Spontaneous
  Country: US (occurrence: US)
  Receive Date: 20170828
  Receipt Date: 20170828
  Transmission Date: 20171127
  Serious: No
  Sender: FDA-Public Use
  Company Number: US-ROCHE-1139380

PATIENT
  Sex: Male
  Weight: 32.9 kg

DRUGS (2)
  1. PROTROPIN [Suspect]
     Active Substance: SOMATREM
     Indication: GROWTH HORMONE DEFICIENCY
     Dosage: DOSE PER INJECTION 0.6 ML
     Route: 058
  2. NUTROPIN AQ [Suspect]
     Active Substance: SOMATROPIN
     Indication: GROWTH HORMONE DEFICIENCY
     Dosage: 0.3 MG/KG/WEEK OR DOSE PER INJECTION 0.25 ML
     Route: 058

REACTIONS (3)
  - Nasal congestion [Unknown]
  - Injection site swelling [Unknown]
  - Burning sensation [Unknown]
